FAERS Safety Report 7761298-5 (Version None)
Quarter: 2011Q3

REPORT INFORMATION
  Report Type: 
  Country: None (occurrence: None)
  Receive Date: 20110915
  Receipt Date: 20110903
  Transmission Date: 20111222
  Serious: Yes (Hospitalization)
  Sender: FDA-Public Use
  Company Number: 2011AP001976

PATIENT
  Age: 67 Year
  Sex: Male

DRUGS (6)
  1. DILTIAZEM [Concomitant]
  2. ASPIRIN [Concomitant]
  3. FLUTICASONE PROPIONATE W/SALMETEROL (FLUTICASONE PROPIONATE W/SALMETER [Concomitant]
  4. OMEPRAZOLE [Suspect]
     Indication: GASTRITIS
     Dosage: 20;40 MG, QD, QOD,
  5. OMEPRAZOLE [Suspect]
     Indication: PROPHYLAXIS
     Dosage: 20;40 MG, QD, QOD,
  6. LOSARTAN POTASSIUM [Concomitant]

REACTIONS (5)
  - HYPOCALCAEMIA [None]
  - PARAESTHESIA [None]
  - HYPOMAGNESAEMIA [None]
  - TETANY [None]
  - ASTHENIA [None]
